FAERS Safety Report 15291019 (Version 2)
Quarter: 2020Q1

REPORT INFORMATION
  Report Type: Report from Study
  Country: US (occurrence: US)
  Receive Date: 20180817
  Receipt Date: 20200213
  Transmission Date: 20200409
  Serious: Yes (Other)
  Sender: FDA-Public Use
  Company Number: US-BRISTOL-MYERS SQUIBB COMPANY-BMS-2018-075037

PATIENT
  Age: 62 Year
  Sex: Female

DRUGS (1)
  1. ABATACEPT [Suspect]
     Active Substance: ABATACEPT
     Indication: RHEUMATOID ARTHRITIS
     Dosage: 1000 MG, Q4WK
     Route: 042
     Dates: start: 201109

REACTIONS (4)
  - Upper respiratory tract infection [Unknown]
  - Cellulitis [Unknown]
  - Gallbladder disorder [Unknown]
  - Sinusitis [Unknown]

NARRATIVE: CASE EVENT DATE: 2012
